FAERS Safety Report 17823561 (Version 1)
Quarter: 2020Q2

REPORT INFORMATION
  Report Type: Spontaneous
  Country: US (occurrence: US)
  Receive Date: 20200525
  Receipt Date: 20200525
  Transmission Date: 20200714
  Serious: Yes (Other)
  Sender: FDA-Public Use
  Company Number: None

PATIENT
  Age: 54 Year
  Sex: Female
  Weight: 69.75 kg

DRUGS (4)
  1. BENEFIBER [Concomitant]
     Active Substance: STARCH, WHEAT
  2. ROSUVASTATIN. [Concomitant]
     Active Substance: ROSUVASTATIN
  3. LOMAIRA [Concomitant]
     Active Substance: PHENTERMINE HYDROCHLORIDE
  4. PANTOPRAZOLE 40 MG TABLETS [Suspect]
     Active Substance: PANTOPRAZOLE SODIUM
     Indication: EOSINOPHILIC OESOPHAGITIS
     Dosage: ?          QUANTITY:1 TABLET(S);?
     Route: 048
     Dates: start: 20200426, end: 20200525

REACTIONS (2)
  - Diarrhoea [None]
  - Product substitution issue [None]

NARRATIVE: CASE EVENT DATE: 20200426
